FAERS Safety Report 5427133-5 (Version None)
Quarter: 2007Q3

REPORT INFORMATION
  Report Type: 
  Country: None (occurrence: None)
  Receive Date: 20070828
  Receipt Date: 20070820
  Transmission Date: 20080115
  Serious: Yes (Other)
  Sender: FDA-Public Use
  Company Number: PHEH2005US01236

PATIENT
  Age: 58 Year
  Sex: Male
  Weight: 84 kg

DRUGS (11)
  1. ZOMETA [Suspect]
     Indication: METASTASES TO BONE
     Dosage: 4 MG, Q3WK
     Dates: start: 20021104, end: 20030903
  2. CHEMOTHERAPEUTICS,OTHER [Concomitant]
  3. ZOCOR [Concomitant]
     Dosage: 40 MG, QD
     Route: 048
  4. TAXOL [Concomitant]
     Indication: PROSTATE CANCER METASTATIC
  5. WELLBUTRIN SR [Concomitant]
     Dosage: 150 MG, BID
     Route: 048
  6. DECADRON [Concomitant]
     Dosage: 4 MG, UNK
  7. REMERON [Concomitant]
     Dosage: 30 MG, QHS
     Route: 048
  8. LEXAPRO [Concomitant]
     Dosage: 10 MG, QD
     Route: 048
  9. CASODEX [Concomitant]
     Indication: PROSTATE CANCER METASTATIC
     Dosage: 50 MG, QD
     Route: 048
  10. CARBOPLATIN [Concomitant]
     Indication: PROSTATE CANCER METASTATIC
  11. LUPRON [Concomitant]
     Indication: PROSTATE CANCER METASTATIC

REACTIONS (12)
  - BONE DEBRIDEMENT [None]
  - BONE DISORDER [None]
  - BONE OPERATION [None]
  - DENTAL OPERATION [None]
  - DENTAL TREATMENT [None]
  - GINGIVAL OPERATION [None]
  - IMPAIRED HEALING [None]
  - JAW DISORDER [None]
  - NUCLEAR MAGNETIC RESONANCE IMAGING ABNORMAL [None]
  - OSTEONECROSIS [None]
  - SWELLING [None]
  - TOOTH EXTRACTION [None]
